FAERS Safety Report 24774585 (Version 1)
Quarter: 2024Q4

REPORT INFORMATION
  Report Type: Spontaneous
  Country: US (occurrence: US)
  Receive Date: 20241226
  Receipt Date: 20241226
  Transmission Date: 20250115
  Serious: Yes (Hospitalization, Other)
  Sender: NOVO NORDISK
  Company Number: US-NOVOPROD-1340421

PATIENT
  Age: 25 Year
  Sex: Female

DRUGS (4)
  1. INSULIN DEGLUDEC [Suspect]
     Active Substance: INSULIN DEGLUDEC
     Indication: Type 1 diabetes mellitus
     Dosage: 70 IU, QD
     Route: 058
  2. INSULIN DEGLUDEC [Suspect]
     Active Substance: INSULIN DEGLUDEC
     Dosage: 40 IU, QD
     Route: 058
  3. INSULIN DEGLUDEC [Suspect]
     Active Substance: INSULIN DEGLUDEC
     Dosage: 100 IU, TID
     Route: 058
  4. INSULIN LISPRO [Suspect]
     Active Substance: INSULIN LISPRO
     Indication: Type 1 diabetes mellitus
     Dosage: UNK
     Route: 058

REACTIONS (7)
  - Pre-eclampsia [Unknown]
  - Premature delivery [Unknown]
  - Insulin resistance [Unknown]
  - Breech presentation [Unknown]
  - Weight increased [Unknown]
  - Blood glucose increased [Unknown]
  - Maternal exposure during pregnancy [Unknown]
